FAERS Safety Report 10239867 (Version 2)
Quarter: 2014Q4

REPORT INFORMATION
  Report Type: Spontaneous
  Country: DE (occurrence: DE)
  Receive Date: 20140616
  Receipt Date: 20141027
  Transmission Date: 20150528
  Serious: Yes (Other)
  Sender: FDA-Public Use
  Company Number: DE-GE HEALTHCARE MEDICAL DIAGNOSTICS-OMPQ-PR-1406S-0604

PATIENT
  Age: 52 Year
  Sex: Female
  Weight: 83 kg

DRUGS (3)
  1. ACCUPAQUE [Suspect]
     Active Substance: IOHEXOL
     Indication: DIAGNOSTIC PROCEDURE
  2. TROMETAMOL [Suspect]
     Active Substance: DEXKETOPROFEN TROMETAMOL
     Indication: ACCIDENTAL EXPOSURE TO PRODUCT
     Route: 062
     Dates: start: 201208
  3. ACCUPAQUE [Suspect]
     Active Substance: IOHEXOL
     Indication: ACCIDENTAL EXPOSURE TO PRODUCT
     Route: 062
     Dates: start: 201208

REACTIONS (2)
  - Occupational exposure to product [Recovered/Resolved]
  - Eczema [Recovered/Resolved]

NARRATIVE: CASE EVENT DATE: 201212
